FAERS Safety Report 18721560 (Version 1)
Quarter: 2021Q1

REPORT INFORMATION
  Report Type: Spontaneous
  Country: US (occurrence: US)
  Receive Date: 20210110
  Receipt Date: 20210110
  Transmission Date: 20210419
  Serious: Yes (Other)
  Sender: FDA-Public Use
  Company Number: NVSC2021US003536

PATIENT
  Age: 69 Year
  Sex: Male

DRUGS (2)
  1. MYCOPHENOLATE MOFETIL. [Suspect]
     Active Substance: MYCOPHENOLATE MOFETIL
     Dosage: 500 MG, BID (MMF DECREASED)
     Route: 065
  2. MYCOPHENOLATE MOFETIL. [Suspect]
     Active Substance: MYCOPHENOLATE MOFETIL
     Indication: LUPUS NEPHRITIS
     Dosage: 1 G, BID
     Route: 065

REACTIONS (9)
  - Refractory cytopenia with unilineage dysplasia [Unknown]
  - Clostridium difficile colitis [Unknown]
  - Product use in unapproved indication [Unknown]
  - Motion sickness [Unknown]
  - Ataxia [Unknown]
  - Progressive multifocal leukoencephalopathy [Unknown]
  - Apraxia [Unknown]
  - Gastrointestinal haemorrhage [Unknown]
  - Diplopia [Unknown]
